FAERS Safety Report 20694486 (Version 3)
Quarter: 2022Q3

REPORT INFORMATION
  Report Type: Spontaneous
  Country: FR (occurrence: FR)
  Receive Date: 20220411
  Receipt Date: 20220905
  Transmission Date: 20221026
  Serious: Yes (Other)
  Sender: FDA-Public Use
  Company Number: FR-GILEAD-2022-0576411

PATIENT
  Sex: Female

DRUGS (1)
  1. VIREAD [Suspect]
     Active Substance: TENOFOVIR DISOPROXIL FUMARATE
     Indication: Hepatitis B
     Dosage: UNK
     Route: 065

REACTIONS (1)
  - Oesophageal stenosis [Unknown]
